FAERS Safety Report 6007295-1 (Version None)
Quarter: 2008Q4

REPORT INFORMATION
  Report Type: 
  Country: None (occurrence: None)
  Receive Date: 20081217
  Receipt Date: 20080225
  Transmission Date: 20090506
  Serious: No
  Sender: FDA-Public Use
  Company Number: US-ASTRAZENECA-2008UW04034

PATIENT
  Age: 63 Year
  Sex: Female
  Weight: 129.3 kg

DRUGS (23)
  1. CRESTOR [Suspect]
     Indication: BLOOD CHOLESTEROL
     Route: 048
     Dates: start: 20080211
  2. LANTUS [Concomitant]
     Dosage: 8 UNITS
  3. VITAMIN B [Concomitant]
  4. FOSAMAX [Concomitant]
     Route: 048
  5. ENBREL [Concomitant]
     Route: 048
  6. ASPIRIN [Concomitant]
     Route: 048
  7. BACLOFEN [Concomitant]
     Route: 048
  8. DILTIAZEM HCL [Concomitant]
     Route: 048
  9. AVAPRO [Concomitant]
     Route: 048
  10. ZETIA [Concomitant]
     Route: 048
  11. SYNTHROID [Concomitant]
  12. CELEBREX [Concomitant]
  13. POTASSIUM CHLORIDE [Concomitant]
  14. LYRICA [Concomitant]
  15. ZONEGRAN [Concomitant]
     Route: 048
  16. WARFARIN SODIUM [Concomitant]
     Route: 048
  17. LORTAB [Concomitant]
     Route: 048
  18. OSTEO BI-FLEX [Concomitant]
  19. VITAMIN E [Concomitant]
  20. OSCAL D [Concomitant]
  21. FLAX FISH ORANGE OIL [Concomitant]
  22. FIBER [Concomitant]
  23. LIPITOR [Concomitant]

REACTIONS (1)
  - BLOOD GLUCOSE INCREASED [None]
